FAERS Safety Report 5945834-7 (Version None)
Quarter: 2008Q4

REPORT INFORMATION
  Report Type: 
  Country: None (occurrence: None)
  Receive Date: 20081106
  Receipt Date: 20081023
  Transmission Date: 20090506
  Serious: Yes (Life-Threatening, Hospitalization)
  Sender: FDA-Public Use
  Company Number: 2008BI019320

PATIENT
  Age: 40 Year
  Sex: Male
  Weight: 61.2356 kg

DRUGS (2)
  1. TYSABRI [Suspect]
     Indication: MULTIPLE SCLEROSIS
     Dosage: 300 MG; QM; IV, 300 MG; QW; IM
     Route: 030
     Dates: start: 20070426
  2. TYSABRI [Suspect]
     Indication: MULTIPLE SCLEROSIS
     Dosage: 300 MG; QM; IV, 300 MG; QW; IM
     Route: 030
     Dates: start: 20081010

REACTIONS (10)
  - BLOOD GLUCOSE INCREASED [None]
  - CONCUSSION [None]
  - CONTUSION [None]
  - CONVULSION [None]
  - FALL [None]
  - HEAD INJURY [None]
  - LOSS OF CONSCIOUSNESS [None]
  - PNEUMONIA ASPIRATION [None]
  - ROAD TRAFFIC ACCIDENT [None]
  - SKULL FRACTURED BASE [None]
